FAERS Safety Report 24544345 (Version 3)
Quarter: 2025Q1

REPORT INFORMATION
  Report Type: Spontaneous
  Country: PL (occurrence: PL)
  Receive Date: 20241024
  Receipt Date: 20250129
  Transmission Date: 20250408
  Serious: Yes (Hospitalization, Other)
  Sender: PFIZER
  Company Number: PL-ROCHE-10000105669

PATIENT
  Age: 71 Year
  Sex: Male
  Weight: 59.65 kg

DRUGS (12)
  1. RITUXIMAB [Suspect]
     Active Substance: RITUXIMAB
     Indication: Chronic lymphocytic leukaemia
     Route: 042
     Dates: start: 20230509, end: 20230926
  2. PIRTOBRUTINIB [Suspect]
     Active Substance: PIRTOBRUTINIB
     Indication: Chronic lymphocytic leukaemia
     Dosage: 200 MG, DAILY (PATIENT RECEIVED THE SUBSEQUENT DOSE OF PIRTOBRUTINIB 26SEP2024 AND 01OCT2024)
     Route: 048
     Dates: start: 20230509, end: 20240926
  3. VENCLEXTA [Suspect]
     Active Substance: VENETOCLAX
     Indication: Chronic lymphocytic leukaemia
     Dosage: 400 MG, DAILY (PATIENT RECEIVED THE SUBSEQUENT DOSE OF VENCLEXTA 26SEP2024 AND 01OCT2024)
     Route: 048
     Dates: start: 20230509, end: 20240926
  4. ASPIRIN [Concomitant]
     Active Substance: ASPIRIN
     Dates: start: 20200715
  5. ACURENAL [Concomitant]
     Indication: Hypertension
     Dates: start: 2015
  6. BISEPTOL [Concomitant]
     Active Substance: SULFAMETHOXAZOLE\TRIMETHOPRIM
     Dates: start: 20230509
  7. HEVIRAN COMFORT [Concomitant]
     Dates: start: 2012
  8. HEVIRAN COMFORT [Concomitant]
     Dates: start: 20200715
  9. NORFLOXACIN [Concomitant]
     Active Substance: NORFLOXACIN
     Indication: Urinary tract infection
     Dates: start: 20240827
  10. FERROUS SULFATE [Concomitant]
     Active Substance: FERROUS SULFATE
     Dates: start: 20231219
  11. CEFTRIAXONE [Concomitant]
     Active Substance: CEFTRIAXONE
  12. GENTAMICIN [Concomitant]
     Active Substance: GENTAMICIN

REACTIONS (2)
  - Second primary malignancy [Recovered/Resolved]
  - Squamous cell carcinoma of lung [Recovered/Resolved]

NARRATIVE: CASE EVENT DATE: 20240926
